FAERS Safety Report 17834587 (Version 1)
Quarter: 2020Q2

REPORT INFORMATION
  Report Type: Report from Study
  Country: BR (occurrence: BR)
  Receive Date: 20200528
  Receipt Date: 20200528
  Transmission Date: 20200714
  Serious: Yes (Hospitalization)
  Sender: FDA-Public Use
  Company Number: BR-UCBSA-2020002843

PATIENT
  Age: 39 Year
  Sex: Female
  Weight: 57 kg

DRUGS (3)
  1. CERTOLIZUMAB PEGOL ASP [Suspect]
     Active Substance: CERTOLIZUMAB PEGOL
     Indication: ANKYLOSING SPONDYLITIS
     Dosage: 200 MILLIGRAM, EV 2 WEEKS(QOW)
     Route: 058
  2. CYCLOBENZAPRINE. [Concomitant]
     Active Substance: CYCLOBENZAPRINE
     Indication: FIBROMYALGIA
     Dosage: 1 DOSAGE FORM, AS NEEDED (PRN)
     Route: 048
     Dates: start: 2006
  3. TROMETAMOL [Concomitant]
     Active Substance: TROMETHAMINE
     Indication: EYE IRRITATION
     Dosage: 1 DROP, 4X/DAY (QID)
     Route: 047
     Dates: start: 20200523

REACTIONS (4)
  - Hospitalisation [Unknown]
  - Eye irritation [Recovering/Resolving]
  - Pain [Not Recovered/Not Resolved]
  - Ocular hyperaemia [Unknown]

NARRATIVE: CASE EVENT DATE: 20200523
